FAERS Safety Report 6409509-2 (Version None)
Quarter: 2009Q4

REPORT INFORMATION
  Report Type: 
  Country: None (occurrence: None)
  Receive Date: 20091013
  Receipt Date: 20090928
  Transmission Date: 20100525
  Serious: Yes (Hospitalization)
  Sender: FDA-Public Use
  Company Number: B0596706A

PATIENT
  Age: 56 Year
  Sex: Male

DRUGS (1)
  1. FLUTICASONE PROPIONATE+SALMETEROL XINAFOATE (FORMULATION) (FLUTICASONE [Suspect]
     Indication: CHRONIC OBSTRUCTIVE PULMONARY DISEASE
     Dosage: 50 UG/ TWICE PER DAY/ UNKNOWN

REACTIONS (12)
  - COUGH [None]
  - DYSPHONIA [None]
  - DYSPNOEA [None]
  - EPIGLOTTIS ULCER [None]
  - LUNG INFILTRATION [None]
  - LUNG NEOPLASM [None]
  - MYCOBACTERIUM AVIUM COMPLEX INFECTION [None]
  - OBSTRUCTIVE AIRWAYS DISORDER [None]
  - OROPHARYNGEAL CANDIDIASIS [None]
  - POST PROCEDURAL HAEMORRHAGE [None]
  - SPUTUM CULTURE POSITIVE [None]
  - STRIDOR [None]
